FAERS Safety Report 5347076-5 (Version None)
Quarter: 2007Q2

REPORT INFORMATION
  Report Type: 
  Country: None (occurrence: None)
  Receive Date: 20070604
  Receipt Date: 20070522
  Transmission Date: 20071010
  Serious: Yes (Hospitalization)
  Sender: FDA-Public Use
  Company Number: GXBR2007US01087

PATIENT
  Age: 65 Year
  Sex: Female
  Weight: 103.9 kg

DRUGS (7)
  1. BUMETANIDE [Suspect]
     Indication: FLUID RETENTION
     Dosage: 1 MG, BID, ORAL
     Route: 048
     Dates: start: 20060101
  2. ADVAIR DISKUS 100/50 [Concomitant]
  3. INSULIN (INSULIN) [Concomitant]
  4. LEVOTHYROXINE SODIUM [Concomitant]
  5. LIPITOR /NET/ (ATORVASTATIN CALCIUM) [Concomitant]
  6. PLAQUENIL [Concomitant]
  7. WARFARIN (WARFARN) [Concomitant]

REACTIONS (7)
  - CARDIAC FAILURE CONGESTIVE [None]
  - DRUG INEFFECTIVE [None]
  - EPISTAXIS [None]
  - HAEMOPTYSIS [None]
  - PHARMACEUTICAL PRODUCT COMPLAINT [None]
  - PNEUMONIA [None]
  - SINUS HEADACHE [None]
